FAERS Safety Report 4330695-2 (Version None)
Quarter: 2004Q2

REPORT INFORMATION
  Report Type: 
  Country: None (occurrence: None)
  Receive Date: 20040401
  Receipt Date: 20040401
  Transmission Date: 20050107
  Serious: Yes (Hospitalization)
  Sender: FDA-Public Use
  Company Number: None

PATIENT
  Age: 61 Year
  Sex: Male
  Weight: 86.2 kg

DRUGS (19)
  1. TAXOTERE [Suspect]
     Indication: LUNG NEOPLASM MALIGNANT
     Dates: start: 20031114, end: 20031114
  2. ACETAMINOPHEN [Concomitant]
  3. ARTIFICIAL TEARS [Concomitant]
  4. APRIIN [Concomitant]
  5. METHIMAZOLE [Concomitant]
  6. ALBUTEROL SO4 [Concomitant]
  7. IPRATROPIUM BROMIDE INH [Concomitant]
  8. LIDOCAINE/MAALOX/NYSTATIN [Concomitant]
  9. FLUTICASONE PROPIONATE [Concomitant]
  10. NYSTATIN [Concomitant]
  11. OXYCODONE HCL [Concomitant]
  12. CLONAZEPAM [Concomitant]
  13. LANOSPRAZOLE [Concomitant]
  14. CARVEDILOL [Concomitant]
  15. DM 10/GUAIFENESN [Concomitant]
  16. LISINOPRIL [Concomitant]
  17. DOCUSTE NA [Concomitant]
  18. VANCOMYCIN [Concomitant]
  19. CEFTAZIDIME [Concomitant]

REACTIONS (1)
  - FEBRILE NEUTROPENIA [None]
